FAERS Safety Report 9296983 (Version 1)
Quarter: 2013Q2

REPORT INFORMATION
  Report Type: Spontaneous
  Country: JP (occurrence: JP)
  Receive Date: 20130518
  Receipt Date: 20130518
  Transmission Date: 20140414
  Serious: Yes (Death, Hospitalization)
  Sender: FDA-Public Use
  Company Number: JP-BAXTER-2013BAX017307

PATIENT
  Age: 57 Year
  Sex: Male
  Weight: 77 kg

DRUGS (4)
  1. DIANEAL-N PD-4 1.5 PD SOLUTION [Suspect]
     Indication: RENAL FAILURE CHRONIC
     Route: 033
     Dates: start: 20101130, end: 20130504
  2. DIANEAL-N PD-4 1.5 PD SOLUTION [Suspect]
     Route: 033
     Dates: start: 20101130, end: 20130504
  3. DIANEAL-N PD-4 1.5 PD SOLUTION [Suspect]
     Route: 033
     Dates: start: 20101130, end: 20130504
  4. EXTRANEAL PD SOLUTION [Suspect]
     Indication: RENAL FAILURE CHRONIC
     Route: 033
     Dates: start: 20101130, end: 20130504

REACTIONS (2)
  - Aortic aneurysm [Fatal]
  - Cardiac failure [Fatal]
